FAERS Safety Report 10265870 (Version 2)
Quarter: 2014Q2

REPORT INFORMATION
  Report Type: Spontaneous
  Country: US (occurrence: US)
  Receive Date: 20140627
  Receipt Date: 20140627
  Transmission Date: 20141212
  Serious: Yes (Other)
  Sender: FDA-Public Use
  Company Number: US-BAYER-2014-087063

PATIENT
  Age: 21 Year
  Sex: Female

DRUGS (1)
  1. GIANVI [Suspect]
     Indication: CONTRACEPTION
     Dosage: 1 DF, QD
     Route: 048
     Dates: start: 201108

REACTIONS (2)
  - Anaphylactic reaction [None]
  - Rash [None]
